FAERS Safety Report 5866727-X (Version None)
Quarter: 2008Q3

REPORT INFORMATION
  Report Type: 
  Country: None (occurrence: None)
  Receive Date: 20080902
  Receipt Date: 20080821
  Transmission Date: 20090109
  Serious: Yes (Hospitalization)
  Sender: FDA-Public Use
  Company Number: PHHO2008ES09633

PATIENT
  Sex: Female

DRUGS (4)
  1. TACROLIMUS COMP-TAC+ [Suspect]
     Indication: RENAL TRANSPLANT
     Dosage: UNK
     Route: 048
     Dates: start: 20080309, end: 20080709
  2. CERTICAN [Suspect]
     Indication: RENAL TRANSPLANT
     Dosage: 5 MG, DAILY
     Route: 048
     Dates: start: 20080704
  3. MYFORTIC [Suspect]
     Dosage: 360 MG, TID
     Route: 048
     Dates: start: 20080430, end: 20080801
  4. MYFORTIC [Suspect]
     Dosage: 360 MG, DAILY
     Route: 048
     Dates: start: 20080802

REACTIONS (3)
  - APHTHOUS STOMATITIS [None]
  - PAIN [None]
  - PYREXIA [None]
